FAERS Safety Report 19318525 (Version 3)
Quarter: 2021Q3

REPORT INFORMATION
  Report Type: Report from Study
  Country: ES (occurrence: ES)
  Receive Date: 20210527
  Receipt Date: 20210723
  Transmission Date: 20211014
  Serious: Yes (Hospitalization, Other)
  Sender: FDA-Public Use
  Company Number: ES-TAKEDA-2020TUS047102

PATIENT
  Age: 6 Year
  Sex: Male

DRUGS (16)
  1. TEDUGLUTIDE [Suspect]
     Active Substance: TEDUGLUTIDE
     Dosage: 0.800 MILLIGRAM(0.0500 MG/KG), QD
     Route: 065
     Dates: start: 20170820
  2. URSODEOXYCHOLIC ACID [Concomitant]
     Active Substance: URSODIOL
     Indication: HYPERBILIRUBINAEMIA
     Dosage: 150 MILLIGRAM, TID
     Route: 048
     Dates: start: 20201110, end: 20210602
  3. CALCIUM CARBONATE. [Concomitant]
     Active Substance: CALCIUM CARBONATE
     Indication: OSTEOPENIA
     Dosage: 1500 MILLIGRAM, QD
     Route: 048
     Dates: start: 20180402
  4. TEDUGLUTIDE [Suspect]
     Active Substance: TEDUGLUTIDE
     Indication: SHORT-BOWEL SYNDROME
     Dosage: 0.8 MILLIGRAM(0.0500 MG/KG), 1/WEEK
     Route: 065
     Dates: start: 20170820
  5. TEDUGLUTIDE [Suspect]
     Active Substance: TEDUGLUTIDE
     Indication: SHORT-BOWEL SYNDROME
     Dosage: 0.8 MILLIGRAM(0.0500 MG/KG), 1/WEEK
     Route: 065
     Dates: start: 20170820
  6. TEDUGLUTIDE [Suspect]
     Active Substance: TEDUGLUTIDE
     Indication: SHORT-BOWEL SYNDROME
     Dosage: 0.8 MILLIGRAM(0.0500 MG/KG), 1/WEEK
     Route: 065
     Dates: start: 20170820
  7. TEDUGLUTIDE [Suspect]
     Active Substance: TEDUGLUTIDE
     Dosage: 0.800 MILLIGRAM(0.0500 MG/KG), QD
     Route: 065
     Dates: start: 20170820
  8. FLUTICASONA [Concomitant]
     Active Substance: FLUTICASONE PROPIONATE
     Indication: RHINITIS
     Dosage: 27.5 MICROGRAM, QD
     Route: 045
     Dates: start: 20200928
  9. URSOCHOL [Concomitant]
     Active Substance: URSODIOL
     Indication: LIVER DISORDER
     Dosage: 150 MILLIGRAM, TID
     Route: 048
     Dates: start: 20201023
  10. TINZAPARINA DE SODIO [Concomitant]
     Active Substance: TINZAPARIN SODIUM
     Indication: VENOUS THROMBOSIS
     Dosage: 2500 INTERNATIONAL UNIT, QD
     Route: 048
     Dates: start: 20200528
  11. TEDUGLUTIDE [Suspect]
     Active Substance: TEDUGLUTIDE
     Dosage: 0.800 MILLIGRAM(0.0500 MG/KG), QD
     Route: 065
     Dates: start: 20170820
  12. ACETAMINOPHEN. [Concomitant]
     Active Substance: ACETAMINOPHEN
     Indication: ABDOMINAL PAIN
     Dosage: 170 MILLIGRAM
     Route: 048
     Dates: start: 20210212, end: 20210215
  13. TEDUGLUTIDE [Suspect]
     Active Substance: TEDUGLUTIDE
     Indication: SHORT-BOWEL SYNDROME
     Dosage: 0.8 MILLIGRAM(0.0500 MG/KG), 1/WEEK
     Route: 065
     Dates: start: 20170820
  14. VITAMIN A AND E [Concomitant]
     Indication: VITAMIN A DEFICIENCY
     Dosage: 1 CAP, QD
     Route: 048
     Dates: start: 20210630
  15. TEDUGLUTIDE [Suspect]
     Active Substance: TEDUGLUTIDE
     Dosage: 0.800 MILLIGRAM(0.0500 MG/KG), QD
     Route: 065
     Dates: start: 20170820
  16. VITAMIN A AND E [Concomitant]
     Indication: VITAMIN E DEFICIENCY

REACTIONS (3)
  - Rhinitis [Recovered/Resolved]
  - Vascular device infection [Recovered/Resolved]
  - Staphylococcal infection [Not Recovered/Not Resolved]

NARRATIVE: CASE EVENT DATE: 20200928
